FAERS Safety Report 20594150 (Version 1)
Quarter: 2022Q1

REPORT INFORMATION
  Report Type: Report from Study
  Country: US (occurrence: US)
  Receive Date: 20220315
  Receipt Date: 20220315
  Transmission Date: 20220423
  Serious: Yes (Hospitalization)
  Sender: FDA-Public Use
  Company Number: US-CELGENE-USA-20220303730

PATIENT
  Age: 69 Year
  Sex: Female
  Weight: 85.352 kg

DRUGS (2)
  1. REVLIMID [Suspect]
     Active Substance: LENALIDOMIDE
     Indication: Plasma cell myeloma
     Dosage: 25 MILLIGRAM
     Route: 048
     Dates: start: 20211227
  2. REVLIMID [Suspect]
     Active Substance: LENALIDOMIDE
     Indication: Acute lymphocytic leukaemia

REACTIONS (2)
  - Dysstasia [Unknown]
  - Arthralgia [Unknown]

NARRATIVE: CASE EVENT DATE: 20220301
